FAERS Safety Report 9064519 (Version 1)
Quarter: 2013Q1

REPORT INFORMATION
  Report Type: Spontaneous
  Country: AU (occurrence: AU)
  Receive Date: 20130128
  Receipt Date: 20130128
  Transmission Date: 20140127
  Serious: Yes (Other)
  Sender: FDA-Public Use
  Company Number: AU-BAYER-2013-006226

PATIENT
  Age: 28 Year
  Sex: Female

DRUGS (6)
  1. BETAFERON [Suspect]
     Indication: MULTIPLE SCLEROSIS
     Dosage: 12 MIU, QOD
     Dates: start: 201106, end: 201211
  2. ORAL CONTRACEPTIVE NOS [Concomitant]
  3. ZINC [Concomitant]
  4. VITAMIN A [Concomitant]
  5. PANADOL [Concomitant]
     Dosage: UNK UNK, PRN
  6. NUROFEN [Concomitant]
     Dosage: UNK UNK, Q1MON

REACTIONS (12)
  - Hepatitis acute [Recovered/Resolved]
  - Drug-induced liver injury [Recovering/Resolving]
  - Fatigue [Recovering/Resolving]
  - Faeces pale [Recovering/Resolving]
  - Chromaturia [Recovering/Resolving]
  - Decreased appetite [Recovering/Resolving]
  - Nausea [Recovering/Resolving]
  - Abdominal discomfort [Recovering/Resolving]
  - Multiple sclerosis relapse [None]
  - Diplopia [None]
  - Extraocular muscle paresis [None]
  - Incorrect dose administered [None]
